FAERS Safety Report 6338275-4 (Version None)
Quarter: 2009Q3

REPORT INFORMATION
  Report Type: 
  Country: None (occurrence: None)
  Receive Date: 20090902
  Receipt Date: 20090824
  Transmission Date: 20100115
  Serious: Yes (Hospitalization)
  Sender: FDA-Public Use
  Company Number: TW-WATSON-2009-06920

PATIENT
  Age: 67 Year
  Sex: Female

DRUGS (2)
  1. CAPTOPRIL (WATSON LABORATORIES) [Suspect]
     Indication: HYPERTENSION
     Dosage: 6.25 MG, TID
     Route: 048
  2. CAPTOPRIL (WATSON LABORATORIES) [Suspect]
     Dosage: 25 MG, SINGLE
     Route: 060

REACTIONS (1)
  - PARKINSON'S DISEASE [None]
